FAERS Safety Report 14741527 (Version 1)
Quarter: 2018Q2

REPORT INFORMATION
  Report Type: Spontaneous
  Country: US (occurrence: US)
  Receive Date: 20180410
  Receipt Date: 20180410
  Transmission Date: 20180711
  Serious: No
  Sender: FDA-Public Use
  Company Number: US-UNITED THERAPEUTICS-UNT-2018-000365

PATIENT
  Age: 64 Year
  Sex: Female
  Weight: 124.72 kg

DRUGS (8)
  1. REVATIO [Concomitant]
     Active Substance: SILDENAFIL CITRATE
     Indication: PRODUCT USED FOR UNKNOWN INDICATION
     Route: 065
  2. DILTIAZEM. [Concomitant]
     Active Substance: DILTIAZEM
     Indication: PRODUCT USED FOR UNKNOWN INDICATION
     Route: 065
  3. REMODULIN [Suspect]
     Active Substance: TREPROSTINIL
     Dosage: 0.085 ?G/KG, CONTINUING
     Route: 041
  4. REMODULIN [Suspect]
     Active Substance: TREPROSTINIL
     Dosage: 0.073 ?G/KG, CONTINUING
     Route: 041
  5. COUMADIN [Suspect]
     Active Substance: WARFARIN SODIUM
     Indication: PRODUCT USED FOR UNKNOWN INDICATION
     Dosage: UNK
     Route: 065
  6. REMODULIN [Suspect]
     Active Substance: TREPROSTINIL
     Indication: PULMONARY ARTERIAL HYPERTENSION
     Dosage: 0.071 ?G/KG, CONTINUING
     Route: 041
     Dates: start: 20100614
  7. REMODULIN [Suspect]
     Active Substance: TREPROSTINIL
     Dosage: 0.096 ?G/KG, CONTINUING
     Route: 041
  8. LETAIRIS [Suspect]
     Active Substance: AMBRISENTAN
     Indication: PRODUCT USED FOR UNKNOWN INDICATION
     Dosage: UNK
     Route: 065
     Dates: start: 20180308

REACTIONS (25)
  - Platelet count decreased [Unknown]
  - Nasopharyngitis [Unknown]
  - Pyrexia [Unknown]
  - Pulmonary arterial hypertension [Unknown]
  - Back pain [Unknown]
  - Headache [Unknown]
  - Abdominal discomfort [Unknown]
  - Chest pain [Unknown]
  - Dyspnoea [Unknown]
  - Pain in extremity [Unknown]
  - Constipation [Unknown]
  - Pulmonary arterial pressure increased [Unknown]
  - International normalised ratio increased [Unknown]
  - Decreased appetite [Unknown]
  - Nausea [Unknown]
  - Productive cough [Unknown]
  - Diarrhoea [Unknown]
  - Pneumonia [Unknown]
  - Malaise [Unknown]
  - Upper respiratory tract infection [Unknown]
  - Haemoptysis [Recovered/Resolved]
  - Pain [Unknown]
  - Laryngitis [Not Recovered/Not Resolved]
  - Oxygen saturation decreased [Unknown]
  - Fatigue [Unknown]

NARRATIVE: CASE EVENT DATE: 201802
